FAERS Safety Report 6971243-8 (Version None)
Quarter: 2010Q3

REPORT INFORMATION
  Report Type: 
  Country: None (occurrence: None)
  Receive Date: 20100908
  Receipt Date: 20100902
  Transmission Date: 20110219
  Serious: Yes (Other)
  Sender: FDA-Public Use
  Company Number: JP-BRISTOL-MYERS SQUIBB COMPANY-15075377

PATIENT
  Age: 65 Year
  Sex: Female

DRUGS (6)
  1. AVAPRO [Suspect]
     Indication: HYPERTENSION
     Route: 048
     Dates: start: 20090915, end: 20100316
  2. CONIEL [Concomitant]
     Indication: HYPERTENSION
     Route: 048
     Dates: start: 20060516, end: 20100316
  3. BLOPRESS [Concomitant]
     Indication: HYPERTENSION
     Dosage: 16MAY06 TO 15SEP09:4MG 16MAR10 TO CON:4MG
     Route: 048
     Dates: start: 20060316
  4. NORVASC [Concomitant]
     Indication: HYPERTENSION
     Route: 048
     Dates: start: 20100316
  5. GASTER D [Concomitant]
     Indication: GASTRITIS
     Route: 048
     Dates: start: 20100316
  6. PREDONINE [Concomitant]
     Indication: PLATELET COUNT DECREASED
     Dosage: DOSE REDUCED TO 10MG:01JUL2010
     Route: 048
     Dates: start: 20100316

REACTIONS (2)
  - EPISTAXIS [None]
  - PLATELET COUNT DECREASED [None]
